FAERS Safety Report 8745677 (Version 2)
Quarter: 2012Q4

REPORT INFORMATION
  Report Type: 
  Country: GR (occurrence: GR)
  Receive Date: 20120826
  Receipt Date: 20120829
  Transmission Date: 20130627
  Serious: Yes (Hospitalization)
  Sender: FDA-Public Use
  Company Number: GR-AMGEN-GRCSP2012053273

PATIENT
  Age: 56 Year
  Sex: Female

DRUGS (4)
  1. PROLIA [Suspect]
     Indication: OSTEOPOROSIS
     Dosage: 60 mg, q6mo
     Route: 065
     Dates: start: 20110727
  2. LEPUR [Concomitant]
     Dosage: 40 mg, UNK
     Dates: start: 2010
  3. THYRO [Concomitant]
     Dosage: 0.1 mg, UNK
  4. DILATREND [Concomitant]
     Dosage: 6.25 mg, UNK

REACTIONS (7)
  - Atrial fibrillation [Recovered/Resolved]
  - Chest pain [Recovered/Resolved]
  - Musculoskeletal pain [Recovered/Resolved]
  - Tremor [Not Recovered/Not Resolved]
  - Muscular weakness [Not Recovered/Not Resolved]
  - Fatigue [Not Recovered/Not Resolved]
  - Panic attack [Unknown]
